FAERS Safety Report 5536013-6 (Version None)
Quarter: 2007Q4

REPORT INFORMATION
  Report Type: 
  Country: None (occurrence: None)
  Receive Date: 20071206
  Receipt Date: 20071127
  Transmission Date: 20080405
  Serious: Yes (Hospitalization)
  Sender: FDA-Public Use
  Company Number: PHHO2007AU18179

PATIENT
  Age: 31 Year
  Sex: Male
  Weight: 120 kg

DRUGS (18)
  1. AMN107 [Suspect]
     Indication: CHRONIC MYELOID LEUKAEMIA
     Dosage: 400 MG, BID
     Route: 048
     Dates: start: 20070827
  2. VENTOLIN [Concomitant]
     Indication: ASTHMA
  3. ATROVENT [Concomitant]
     Indication: ASTHMA
  4. FLIXOTIDE [Concomitant]
     Indication: ASTHMA
  5. SEREVENT [Concomitant]
     Indication: ASTHMA
  6. SPIRIVA [Concomitant]
     Indication: ASTHMA
  7. FLUOXETINE [Concomitant]
     Indication: DEPRESSION
  8. LAMICTAL [Concomitant]
     Indication: DEPRESSION
  9. HALOPERIDOL [Concomitant]
     Indication: DEPRESSION
  10. SPIRONOLACTONE [Concomitant]
     Indication: GENDER IDENTITY DISORDER
  11. OESTRADIOL IMPLANT [Concomitant]
     Indication: GENDER IDENTITY DISORDER
  12. ESOMEPRAZOLE [Concomitant]
     Indication: GASTROOESOPHAGEAL REFLUX DISEASE
  13. KETOPROFEN [Concomitant]
     Indication: SPINAL DISORDER
  14. FOLIC ACID [Concomitant]
  15. CLEXANE [Concomitant]
     Indication: PULMONARY EMBOLISM
  16. FERROUS SULFATE TAB [Concomitant]
     Indication: IRON DEFICIENCY
  17. ACETAMINOPHEN [Concomitant]
     Indication: INTERSTITIAL LUNG DISEASE
  18. PREDNISOLONE [Concomitant]
     Indication: INTERSTITIAL LUNG DISEASE

REACTIONS (11)
  - CATHETER REMOVAL [None]
  - CATHETER SITE INFLAMMATION [None]
  - CATHETER SITE PAIN [None]
  - DISCOMFORT [None]
  - LETHARGY [None]
  - MALAISE [None]
  - NAUSEA [None]
  - SUPRAPUBIC CATHETER INSERTION [None]
  - URETHRAL DISORDER [None]
  - URINARY TRACT INFECTION [None]
  - VOMITING [None]
